FAERS Safety Report 23576932 (Version 3)
Quarter: 2025Q1

REPORT INFORMATION
  Report Type: Spontaneous
  Country: GB (occurrence: GB)
  Receive Date: 20240228
  Receipt Date: 20250225
  Transmission Date: 20250408
  Serious: Yes (Hospitalization)
  Sender: MYLAN
  Company Number: GB-MYLANLABS-2024M1018632

PATIENT
  Sex: Male

DRUGS (6)
  1. CLOZARIL [Suspect]
     Active Substance: CLOZAPINE
     Indication: Schizophrenia
  2. CLOZARIL [Suspect]
     Active Substance: CLOZAPINE
     Dosage: 200 MILLIGRAM, BID (TWICE A DAY)
  3. CLOZARIL [Suspect]
     Active Substance: CLOZAPINE
  4. CLOZARIL [Suspect]
     Active Substance: CLOZAPINE
  5. AMISULPRIDE [Suspect]
     Active Substance: AMISULPRIDE
     Indication: Product used for unknown indication
     Dosage: UNK, BID (200 BD)
  6. AMISULPRIDE [Suspect]
     Active Substance: AMISULPRIDE
     Dosage: UNK, BID (350 - 400 BD)

REACTIONS (6)
  - Loss of consciousness [Unknown]
  - General physical condition abnormal [Unknown]
  - Product dose omission issue [Unknown]
  - Fall [Unknown]
  - Constipation [Unknown]
  - Aggression [Unknown]
